FAERS Safety Report 10970397 (Version 1)
Quarter: 2015Q1

REPORT INFORMATION
  Report Type: Spontaneous
  Country: US (occurrence: None)
  Receive Date: 20150330
  Receipt Date: 20150330
  Transmission Date: 20150721
  Serious: Yes (Life-Threatening, Other)
  Sender: FDA-Public Use
  Company Number: None

PATIENT
  Age: 69 Year
  Sex: Male
  Weight: 102.06 kg

DRUGS (3)
  1. OXYCODONE-ACETAMINOPHEN [Suspect]
     Active Substance: ACETAMINOPHEN\OXYCODONE HYDROCHLORIDE
     Indication: BACK PAIN
     Dosage: 1 PILL, TWICE DAILY, TAKEN BY MOUTH
     Route: 048
  2. DILTIAZEM [Concomitant]
     Active Substance: DILTIAZEM
  3. OXYCODONE-ACETAMINOPHEN [Suspect]
     Active Substance: ACETAMINOPHEN\OXYCODONE HYDROCHLORIDE
     Indication: HYPERTENSION
     Dosage: 1 PILL, TWICE DAILY, TAKEN BY MOUTH
     Route: 048

REACTIONS (8)
  - Blood pressure increased [None]
  - Nausea [None]
  - Vomiting [None]
  - Chromaturia [None]
  - Rectal haemorrhage [None]
  - Headache [None]
  - Vision blurred [None]
  - Product quality issue [None]

NARRATIVE: CASE EVENT DATE: 20150325
